FAERS Safety Report 16914469 (Version 2)
Quarter: 2019Q4

REPORT INFORMATION
  Report Type: Spontaneous
  Country: US (occurrence: US)
  Receive Date: 20191014
  Receipt Date: 20191015
  Transmission Date: 20200122
  Serious: No
  Sender: FDA-Public Use
  Company Number: US-PFIZER INC-2019442064

PATIENT
  Age: 57 Year
  Sex: Female
  Weight: 91.63 kg

DRUGS (2)
  1. PHENYTOIN. [Suspect]
     Active Substance: PHENYTOIN
     Dosage: UNK
     Dates: start: 2014, end: 2018
  2. NEURONTIN [Suspect]
     Active Substance: GABAPENTIN
     Dosage: UNK
     Dates: start: 1998

REACTIONS (4)
  - Radiculopathy [Unknown]
  - Nerve injury [Unknown]
  - Vision blurred [Unknown]
  - Formication [Unknown]
